FAERS Safety Report 13945822 (Version 1)
Quarter: 2017Q3

REPORT INFORMATION
  Report Type: Spontaneous
  Country: US (occurrence: US)
  Receive Date: 20170907
  Receipt Date: 20170907
  Transmission Date: 20171128
  Serious: No
  Sender: FDA-Public Use
  Company Number: US-BAYER-2017-171353

PATIENT
  Age: 56 Year
  Sex: Female
  Weight: 109 kg

DRUGS (3)
  1. ASPIRIN. [Concomitant]
     Active Substance: ASPIRIN
  2. METFORMIN [Concomitant]
     Active Substance: METFORMIN HYDROCHLORIDE
     Dosage: UNK
  3. ALEVE [Suspect]
     Active Substance: NAPROXEN SODIUM
     Indication: PAIN
     Dosage: 1 DF, UNK
     Route: 048

REACTIONS (3)
  - Drug ineffective [Unknown]
  - Poor quality drug administered [Unknown]
  - Product quality issue [None]

NARRATIVE: CASE EVENT DATE: 2017
